FAERS Safety Report 8172997-8 (Version None)
Quarter: 2012Q1

REPORT INFORMATION
  Report Type: 
  Country: None (occurrence: None)
  Receive Date: 20120229
  Receipt Date: 20120223
  Transmission Date: 20120608
  Serious: Yes (Hospitalization)
  Sender: FDA-Public Use
  Company Number: PH-JNJFOC-20120212827

PATIENT
  Age: 66 Year

DRUGS (2)
  1. FLUCONAZOLE [Concomitant]
     Route: 065
  2. DORIBAX [Suspect]
     Indication: PNEUMONIA
     Route: 041
     Dates: start: 20120216

REACTIONS (4)
  - GLOMERULONEPHRITIS [None]
  - HAEMATURIA [None]
  - PYURIA [None]
  - URINARY TRACT INFECTION [None]
